FAERS Safety Report 4950768-0 (Version None)
Quarter: 2006Q1

REPORT INFORMATION
  Report Type: 
  Country: None (occurrence: None)
  Receive Date: 20060321
  Receipt Date: 20060321
  Transmission Date: 20060701
  Serious: Yes (Other)
  Sender: FDA-Public Use
  Company Number: None

PATIENT
  Age: 50 Year
  Sex: Female
  Weight: 74.3899 kg

DRUGS (8)
  1. XOLAIR [Suspect]
     Dosage: 150 MG MONTHLY SUBCUT
     Route: 058
  2. ADVAUR [Concomitant]
  3. QVAR 40 [Concomitant]
  4. ALBUTEROL [Concomitant]
  5. ELESTAT [Concomitant]
  6. ASTELIN [Concomitant]
  7. ALLEGRA [Concomitant]
  8. SINGULAIR [Concomitant]

REACTIONS (3)
  - POLYARTHRITIS [None]
  - RHEUMATOID ARTHRITIS [None]
  - SYSTEMIC LUPUS ERYTHEMATOSUS [None]
